FAERS Safety Report 11484204 (Version 1)
Quarter: 2015Q3

REPORT INFORMATION
  Report Type: Spontaneous
  Country: US (occurrence: None)
  Receive Date: 20150904
  Receipt Date: 20150904
  Transmission Date: 20151125
  Serious: Yes (Other)
  Sender: FDA-Public Use
  Company Number: 1000078397

PATIENT
  Age: 72 Year
  Sex: Female

DRUGS (3)
  1. WELLBUTRIN [Concomitant]
     Active Substance: BUPROPION HYDROCHLORIDE
  2. EFFEXOR (VENLAFAXINE HYDROCHLORIDE) (VENLAFAXINE HYDROCHLORIDE0 [Concomitant]
  3. SAPHRIS [Suspect]
     Active Substance: ASENAPINE MALEATE
     Indication: DEPRESSION
     Route: 048
     Dates: start: 201504, end: 20150706

REACTIONS (6)
  - Dyskinesia [None]
  - Drug withdrawal syndrome [None]
  - Tongue spasm [None]
  - Motor dysfunction [None]
  - Abdominal discomfort [None]
  - Suicidal ideation [None]

NARRATIVE: CASE EVENT DATE: 20150710
